FAERS Safety Report 11791507 (Version 1)
Quarter: 2015Q4

REPORT INFORMATION
  Report Type: Spontaneous
  Country: US (occurrence: None)
  Receive Date: 20151130
  Receipt Date: 20151130
  Transmission Date: 20160305
  Serious: No
  Sender: FDA-Public Use
  Company Number: None

PATIENT
  Age: 72 Year
  Sex: Male

DRUGS (21)
  1. KETOCONZAOLE [Concomitant]
  2. CLOTRIMAZOLE. [Concomitant]
     Active Substance: CLOTRIMAZOLE
  3. NIFEDICAL XL [Concomitant]
     Active Substance: NIFEDIPINE
  4. METFORMIN [Concomitant]
     Active Substance: METFORMIN HYDROCHLORIDE
  5. POLYETH GLYC [Concomitant]
     Active Substance: POLYETHYLENE GLYCOLS
  6. HYDROCO/APAP [Concomitant]
     Active Substance: ACETAMINOPHEN\HYDROCODONE
  7. INLYTA [Suspect]
     Active Substance: AXITINIB
     Dosage: 2MG PO QPM
     Route: 048
     Dates: start: 20150810
  8. SIMVASTATIN. [Concomitant]
     Active Substance: SIMVASTATIN
  9. BENAZEPRIL [Concomitant]
     Active Substance: BENAZEPRIL HYDROCHLORIDE
  10. INLYTA [Suspect]
     Active Substance: AXITINIB
     Indication: NEOPLASM MALIGNANT
     Dosage: 5 MG PO QPM
     Route: 048
     Dates: start: 20150810
  11. PIOGLITAZONE. [Concomitant]
     Active Substance: PIOGLITAZONE
  12. CLINDAMYCIN [Concomitant]
     Active Substance: CLINDAMYCIN\CLINDAMYCIN PHOSPHATE
  13. ASPIRIN. [Concomitant]
     Active Substance: ASPIRIN
  14. ALLOPURINOL. [Concomitant]
     Active Substance: ALLOPURINOL
  15. PREDNISONE. [Concomitant]
     Active Substance: PREDNISONE
  16. A-HYDROCORT [Concomitant]
     Active Substance: HYDROCORTISONE SODIUM SUCCINATE
  17. MEGESTROL AC SUS [Concomitant]
  18. NITRO-BID [Concomitant]
     Active Substance: NITROGLYCERIN
  19. PEPTO-BISMOL [Concomitant]
     Active Substance: BISMUTH SUBSALICYLATE\CALCIUM CARBONATE
  20. LEVOTHYROXIN [Concomitant]
     Active Substance: LEVOTHYROXINE
  21. LIDOCAINE. [Concomitant]
     Active Substance: LIDOCAINE

REACTIONS (1)
  - Gout [None]

NARRATIVE: CASE EVENT DATE: 201511
